FAERS Safety Report 12219102 (Version 1)
Quarter: 2016Q1

REPORT INFORMATION
  Report Type: Spontaneous
  Country: US (occurrence: US)
  Receive Date: 20160329
  Receipt Date: 20160329
  Transmission Date: 20160526
  Serious: Yes (Hospitalization)
  Sender: FDA-Public Use
  Company Number: US-SUCAMPO PHARMACEUTICALS, INC.-SPI201600267

PATIENT
  Age: 47 Year
  Sex: Female

DRUGS (2)
  1. AMITIZA [Suspect]
     Active Substance: LUBIPROSTONE
     Indication: IRRITABLE BOWEL SYNDROME
  2. AMITIZA [Suspect]
     Active Substance: LUBIPROSTONE
     Indication: CONSTIPATION

REACTIONS (6)
  - Pharyngeal oedema [Unknown]
  - Paraesthesia [Unknown]
  - Arthralgia [Unknown]
  - Weight decreased [Unknown]
  - Hypoaesthesia [Unknown]
  - Chest discomfort [Unknown]
